FAERS Safety Report 9828386 (Version 2)
Quarter: 2014Q1

REPORT INFORMATION
  Report Type: Spontaneous
  Country: NL (occurrence: NL)
  Receive Date: 20140117
  Receipt Date: 20140203
  Transmission Date: 20141002
  Serious: Yes (Hospitalization)
  Sender: FDA-Public Use
  Company Number: NL-GLAXOSMITHKLINE-B0961107A

PATIENT
  Age: 81 Year
  Sex: Male
  Weight: 75 kg

DRUGS (1)
  1. AVODART [Suspect]
     Indication: BENIGN PROSTATIC HYPERPLASIA
     Dosage: .5MG PER DAY
     Route: 048
     Dates: start: 20090427, end: 20131204

REACTIONS (2)
  - Retroperitoneal fibrosis [Recovering/Resolving]
  - Dizziness [Unknown]
